FAERS Safety Report 8505639-X (Version None)
Quarter: 2012Q3

REPORT INFORMATION
  Report Type: 
  Country: None (occurrence: None)
  Receive Date: 20120712
  Receipt Date: 20120705
  Transmission Date: 20120928
  Serious: Yes (Hospitalization, Congenital Anomaly)
  Sender: FDA-Public Use
  Company Number: US-JNJFOC-20120410487

PATIENT
  Sex: Male

DRUGS (17)
  1. ACETAMINOPHEN [Suspect]
     Route: 064
  2. OXYCODONE/ACETAMINOPHEN [Suspect]
     Indication: FOETAL EXPOSURE DURING PREGNANCY
     Route: 064
  3. NYSTATIN [Suspect]
     Indication: FOETAL EXPOSURE DURING PREGNANCY
     Route: 064
  4. VICODIN [Suspect]
     Indication: FOETAL EXPOSURE DURING PREGNANCY
     Route: 064
  5. ACETAMINOPHEN [Suspect]
     Indication: FOETAL EXPOSURE DURING PREGNANCY
     Route: 064
  6. VITAMIN AND MINERAL PRENATAL SUPPLEMENT W/ FOLIC ACID CAP [Concomitant]
     Route: 064
  7. TOPAMAX [Suspect]
     Indication: FOETAL EXPOSURE DURING PREGNANCY
     Route: 064
  8. OXYCONTIN [Suspect]
     Indication: FOETAL EXPOSURE DURING PREGNANCY
     Route: 064
  9. OVCON-35 [Suspect]
     Indication: FOETAL EXPOSURE DURING PREGNANCY
     Route: 064
  10. ULTRAM [Suspect]
     Indication: FOETAL EXPOSURE DURING PREGNANCY
     Route: 064
  11. SOMA [Suspect]
     Indication: FOETAL EXPOSURE DURING PREGNANCY
     Route: 064
  12. FELDENE [Suspect]
     Indication: FOETAL EXPOSURE DURING PREGNANCY
     Route: 064
  13. CRESTOR [Suspect]
     Indication: FOETAL EXPOSURE DURING PREGNANCY
     Route: 064
  14. EFFEXOR [Suspect]
     Indication: FOETAL EXPOSURE DURING PREGNANCY
     Route: 064
  15. SELECTIVE SEROTONIN REUPTAKE INHIBITOR [Suspect]
     Indication: FOETAL EXPOSURE DURING PREGNANCY
     Route: 064
  16. FOLIC ACID [Concomitant]
     Route: 064
  17. FISH OIL [Concomitant]
     Route: 064

REACTIONS (10)
  - PLAGIOCEPHALY [None]
  - DUANE'S SYNDROME [None]
  - DEVELOPMENTAL DELAY [None]
  - TORTICOLLIS [None]
  - LACRIMAL DISORDER [None]
  - HYDROCELE [None]
  - CLEFT LIP AND PALATE [None]
  - CEREBRAL PALSY [None]
  - CRANIOSYNOSTOSIS [None]
  - FEEDING DISORDER [None]
